FAERS Safety Report 6194935-X (Version None)
Quarter: 2009Q2

REPORT INFORMATION
  Report Type: 
  Country: None (occurrence: None)
  Receive Date: 20090515
  Receipt Date: 20090507
  Transmission Date: 20091009
  Serious: Yes (Death, Life-Threatening)
  Sender: FDA-Public Use
  Company Number: A-JP2008-21597

PATIENT
  Age: 75 Year
  Sex: Female
  Weight: 37 kg

DRUGS (18)
  1. TRACLEER [Suspect]
     Indication: PULMONARY ARTERIAL HYPERTENSION
     Dosage: 62.5 MG, QD, ORAL
     Route: 048
     Dates: start: 20080731, end: 20080801
  2. WARFARIN SODIUM [Concomitant]
  3. BERAPROST SODIUM (BERAPROST SODIUM) [Concomitant]
  4. FUROSEMIDE [Concomitant]
  5. DOBUTAMINE HCL [Concomitant]
  6. THEOPHYLLINE [Concomitant]
  7. MONTELUKAST SODIUM [Concomitant]
  8. FAMOTIDINE [Concomitant]
  9. OXYGEN (OXYGEN) [Concomitant]
  10. ASPIRIN [Concomitant]
  11. TULOBUTEROL (TULOBUTEROL) [Concomitant]
  12. METILDIGOXIN (METILDIGOXIN) [Concomitant]
  13. ALLOPURINOL [Concomitant]
  14. SULPIRIDE (SULPIRIDE) [Concomitant]
  15. CLOXAZOLAM (CLOXAZOLAM) [Concomitant]
  16. MAGNESIUM OXIDE (MAGNESIUM OXIDE) [Concomitant]
  17. ETIXOLAM (ETIZOLAM) [Concomitant]
  18. SPIRONOLACTONE [Concomitant]

REACTIONS (6)
  - HEART RATE DECREASED [None]
  - PNEUMONIA [None]
  - PULMONARY HYPERTENSION [None]
  - RESPIRATORY ARREST [None]
  - RESPIRATORY FAILURE [None]
  - SHOCK [None]
